FAERS Safety Report 4285468-6 (Version None)
Quarter: 2004Q1

REPORT INFORMATION
  Report Type: 
  Country: None (occurrence: None)
  Receive Date: 20040202
  Receipt Date: 20040121
  Transmission Date: 20041129
  Serious: Yes (Hospitalization)
  Sender: FDA-Public Use
  Company Number: JP-JNJFOC-20040104296

PATIENT
  Age: 77 Year
  Sex: Female
  Weight: 39 kg

DRUGS (5)
  1. REMICADE [Suspect]
     Indication: RHEUMATOID ARTHRITIS
     Dosage: 3 MG/KG, 1 IN 1 AS NECESSARY, INTRAVENOUS DRIP
     Route: 042
     Dates: start: 20031105, end: 20031105
  2. REMICADE [Suspect]
     Indication: RHEUMATOID ARTHRITIS
     Dosage: 3 MG/KG, 1 IN 1 AS NECESSARY, INTRAVENOUS DRIP
     Route: 042
     Dates: start: 20031119, end: 20031119
  3. METHOTREXATE [Suspect]
     Indication: RHEUMATOID ARTHRITIS
     Dosage: 6 MG, IN 1 WEEK
     Dates: start: 20030311
  4. PREDNISOLONE [Suspect]
  5. INFLUENZA VACCINE (INFLUENZA VACCINE) [Suspect]

REACTIONS (5)
  - DRUG INTERACTION [None]
  - GASTROINTESTINAL DISORDER [None]
  - MYCOBACTERIUM AVIUM COMPLEX INFECTION [None]
  - PYREXIA [None]
  - TUBERCULOSIS [None]
